FAERS Safety Report 7562148-2 (Version None)
Quarter: 2011Q2

REPORT INFORMATION
  Report Type: 
  Country: None (occurrence: None)
  Receive Date: 20110620
  Receipt Date: 20110620
  Transmission Date: 20111010
  Serious: Yes (Hospitalization)
  Sender: FDA-Public Use
  Company Number: None

PATIENT
  Sex: Female
  Weight: 45.9 kg

DRUGS (10)
  1. COMPAZINE [Concomitant]
  2. MS CONTIN [Concomitant]
  3. ATIVAN [Concomitant]
  4. OMEPRAZOLE [Concomitant]
  5. RAD001 [Suspect]
     Indication: COLORECTAL CANCER
     Dosage: 10 MG PO QD
     Route: 048
     Dates: start: 20110507, end: 20110613
  6. ALLOPURINOL [Concomitant]
  7. FLUCONAZOLE [Concomitant]
  8. AV-951 [Suspect]
     Indication: COLORECTAL CANCER
     Dosage: 1 MG PO QD
     Route: 048
     Dates: start: 20110507, end: 20110613
  9. NYSTATIN [Concomitant]
  10. OXYCODONE HCL [Concomitant]

REACTIONS (4)
  - DISEASE PROGRESSION [None]
  - COLORECTAL CANCER METASTATIC [None]
  - DILATATION INTRAHEPATIC DUCT ACQUIRED [None]
  - ABDOMINAL PAIN UPPER [None]
